FAERS Safety Report 23239750 (Version 1)
Quarter: 2023Q4

REPORT INFORMATION
  Report Type: Spontaneous
  Country: DE (occurrence: DE)
  Receive Date: 20231129
  Receipt Date: 20231129
  Transmission Date: 20240109
  Serious: Yes (Other)
  Sender: FDA-Public Use
  Company Number: None

PATIENT

DRUGS (3)
  1. CIPROFLOXACIN [Suspect]
     Active Substance: CIPROFLOXACIN
     Indication: Antibiotic prophylaxis
     Dosage: UNKNOWN
     Route: 042
     Dates: start: 20211015, end: 20211016
  2. CIPROFLOXACIN [Suspect]
     Active Substance: CIPROFLOXACIN
     Indication: Surgery
  3. CORTISONE ACETATE [Concomitant]
     Active Substance: CORTISONE ACETATE
     Indication: Product used for unknown indication
     Dosage: UNKNOWN
     Route: 065

REACTIONS (14)
  - Fatigue [Not Recovered/Not Resolved]
  - Anxiety [Not Recovered/Not Resolved]
  - Depersonalisation/derealisation disorder [Not Recovered/Not Resolved]
  - Suicidal ideation [Not Recovered/Not Resolved]
  - Panic attack [Not Recovered/Not Resolved]
  - Palpitations [Recovering/Resolving]
  - Rash [Recovering/Resolving]
  - Neuropathy peripheral [Not Recovered/Not Resolved]
  - Cardiovascular disorder [Recovering/Resolving]
  - Dyspnoea [Recovering/Resolving]
  - Somnolence [Not Recovered/Not Resolved]
  - Brain fog [Not Recovered/Not Resolved]
  - Depression [Not Recovered/Not Resolved]
  - Derealisation [Not Recovered/Not Resolved]

NARRATIVE: CASE EVENT DATE: 20211015
